FAERS Safety Report 17136307 (Version 1)
Quarter: 2019Q4

REPORT INFORMATION
  Report Type: Spontaneous
  Country: US (occurrence: US)
  Receive Date: 20191120
  Receipt Date: 20191120
  Transmission Date: 20200122
  Serious: No
  Sender: FDA-Public Use
  Company Number: None

PATIENT
  Age: 11 Year
  Sex: Female

DRUGS (1)
  1. NORDITROPIN [Suspect]
     Active Substance: SOMATROPIN
     Dosage: ?          OTHER DOSE:1.6MHG;?
     Route: 058
     Dates: start: 20160222

REACTIONS (2)
  - Injection site bruising [None]
  - Upper respiratory tract infection [None]

NARRATIVE: CASE EVENT DATE: 20191101
